FAERS Safety Report 20361732 (Version 1)
Quarter: 2022Q1

REPORT INFORMATION
  Report Type: Spontaneous
  Country: US (occurrence: None)
  Receive Date: 20220120
  Receipt Date: 20220120
  Transmission Date: 20220423
  Serious: Yes (Other)
  Sender: FDA-Public Use
  Company Number: None

PATIENT
  Age: 64 Year
  Sex: Female
  Weight: 71.55 kg

DRUGS (9)
  1. ACTEMRA [Suspect]
     Active Substance: TOCILIZUMAB
     Indication: Rheumatoid arthritis
     Dosage: OTHER QUANTITY : 1 INJECTION(S);?OTHER FREQUENCY : EVERY OTHER WEEK;?
     Route: 030
     Dates: start: 20211227, end: 20211227
  2. GABAPENTIN [Concomitant]
     Active Substance: GABAPENTIN
  3. CLONAZEPAM [Concomitant]
     Active Substance: CLONAZEPAM
  4. SERTRALINE [Concomitant]
     Active Substance: SERTRALINE HYDROCHLORIDE
  5. OXYGEN [Concomitant]
     Active Substance: OXYGEN
  6. CLOBETASOL [Concomitant]
     Active Substance: CLOBETASOL
  7. VITAMINS [Concomitant]
     Active Substance: VITAMINS
  8. CALTRATE [Concomitant]
     Active Substance: CALCIUM CARBONATE
  9. MINERALS\VITAMINS [Concomitant]
     Active Substance: MINERALS\VITAMINS

REACTIONS (3)
  - Bacterial vaginosis [None]
  - Vaginal abscess [None]
  - Device difficult to use [None]

NARRATIVE: CASE EVENT DATE: 20211231
